FAERS Safety Report 20427313 (Version 1)
Quarter: 2022Q1

REPORT INFORMATION
  Report Type: Report from Study
  Country: US (occurrence: US)
  Receive Date: 20220204
  Receipt Date: 20220204
  Transmission Date: 20220423
  Serious: No
  Sender: FDA-Public Use
  Company Number: US-EXELIXIS-CABO-21043678

PATIENT
  Age: 68 Year
  Sex: Male

DRUGS (2)
  1. CABOMETYX [Suspect]
     Active Substance: CABOZANTINIB S-MALATE
     Indication: Renal cancer
     Dosage: 40 MG, QD
     Route: 048
     Dates: start: 202107
  2. CABOMETYX [Suspect]
     Active Substance: CABOZANTINIB S-MALATE
     Dosage: 40 MG, QD
     Route: 048

REACTIONS (10)
  - Peripheral swelling [Recovering/Resolving]
  - Dysuria [Unknown]
  - Visual impairment [Recovering/Resolving]
  - Insomnia [Unknown]
  - Skin atrophy [Unknown]
  - Skin ulcer [Unknown]
  - Fatigue [Unknown]
  - Abdominal pain upper [Recovering/Resolving]
  - Hepatic enzyme increased [Unknown]
  - Weight decreased [Unknown]

NARRATIVE: CASE EVENT DATE: 20210726
